FAERS Safety Report 7069247-2 (Version None)
Quarter: 2010Q4

REPORT INFORMATION
  Report Type: 
  Country: None (occurrence: None)
  Receive Date: 20101028
  Receipt Date: 20101020
  Transmission Date: 20110411
  Serious: Yes (Death)
  Sender: FDA-Public Use
  Company Number: US-BAXTER-2010BH026116

PATIENT
  Sex: Female

DRUGS (3)
  1. DIANEAL [Suspect]
     Indication: PERITONEAL DIALYSIS
     Route: 033
  2. DIANEAL [Suspect]
     Indication: PERITONEAL DIALYSIS
     Route: 033
  3. EXTRANEAL [Suspect]
     Indication: PERITONEAL DIALYSIS
     Route: 033

REACTIONS (11)
  - ABDOMINAL DISTENSION [None]
  - BLOOD GLUCOSE DECREASED [None]
  - CULTURE POSITIVE [None]
  - DEATH [None]
  - LACTOBACILLUS INFECTION [None]
  - MUSCLE SPASMS [None]
  - OEDEMA PERIPHERAL [None]
  - PERITONITIS BACTERIAL [None]
  - PROCTALGIA [None]
  - STAPHYLOCOCCAL INFECTION [None]
  - VULVOVAGINAL PAIN [None]
